FAERS Safety Report 9637700 (Version 1)
Quarter: 2013Q4

REPORT INFORMATION
  Report Type: Spontaneous
  Country: NZ (occurrence: NZ)
  Receive Date: 20131022
  Receipt Date: 20131022
  Transmission Date: 20140711
  Serious: Yes (Other)
  Sender: FDA-Public Use
  Company Number: NZ-AMGEN-NZLSP2013073766

PATIENT
  Sex: Male

DRUGS (2)
  1. PEGFILGRASTIM [Suspect]
     Indication: NEUTROPENIA
     Dosage: UNK
     Route: 065
  2. PEGFILGRASTIM [Suspect]
     Indication: NEUTROPENIC SEPSIS

REACTIONS (3)
  - Septic embolus [Unknown]
  - Scedosporium infection [Recovering/Resolving]
  - Drug ineffective [Unknown]
